FAERS Safety Report 8880312 (Version 1)
Quarter: 2012Q4

REPORT INFORMATION
  Report Type: 
  Country: GB (occurrence: GB)
  Receive Date: 20121101
  Receipt Date: 20121101
  Transmission Date: 20130627
  Serious: Yes (Hospitalization, Other)
  Sender: FDA-Public Use
  Company Number: GB-PFIZER INC-2012264714

PATIENT
  Age: 57 Year
  Sex: Female

DRUGS (1)
  1. GABAPENTIN [Suspect]
     Indication: PAIN MANAGEMENT
     Dosage: 5 ml, four times daily
     Route: 048
     Dates: start: 20121004, end: 20121004

REACTIONS (3)
  - Anaphylactic shock [Unknown]
  - Swelling face [Unknown]
  - Dyspnoea [Unknown]
